FAERS Safety Report 5000332-2 (Version None)
Quarter: 2006Q2

REPORT INFORMATION
  Report Type: 
  Country: None (occurrence: None)
  Receive Date: 20060511
  Receipt Date: 20050113
  Transmission Date: 20061013
  Serious: Yes (Hospitalization)
  Sender: FDA-Public Use
  Company Number: US-MERCK-0501USA02248

PATIENT
  Age: 77 Year
  Sex: Female
  Weight: 70 kg

DRUGS (2)
  1. VIOXX [Suspect]
     Indication: ARTHRITIS
     Route: 048
     Dates: start: 19990101, end: 20041006
  2. TYLENOL (CAPLET) [Concomitant]
     Route: 065

REACTIONS (14)
  - ARTHRALGIA [None]
  - ARTHROPATHY [None]
  - ATRIAL FIBRILLATION [None]
  - CARDIAC DISORDER [None]
  - CHRONIC OBSTRUCTIVE PULMONARY DISEASE [None]
  - DEEP VEIN THROMBOSIS [None]
  - DYSPNOEA [None]
  - FAECES DISCOLOURED [None]
  - HERNIA [None]
  - LIMB INJURY [None]
  - LIP AND/OR ORAL CAVITY CANCER [None]
  - MYOCARDIAL INFARCTION [None]
  - RADIUS FRACTURE [None]
  - RESPIRATORY DISTRESS [None]
